FAERS Safety Report 12128615 (Version 1)
Quarter: 2016Q1

REPORT INFORMATION
  Report Type: Other
  Country: US (occurrence: US)
  Receive Date: 20160229
  Receipt Date: 20160229
  Transmission Date: 20160526
  Serious: No
  Sender: FDA-Public Use
  Company Number: US-ACORDA-ACO_118810_2015

PATIENT
  Sex: Female

DRUGS (6)
  1. AMPYRA [Suspect]
     Active Substance: DALFAMPRIDINE
     Indication: MULTIPLE SCLEROSIS
     Dosage: 10 MG, Q 12 HRS
     Route: 048
     Dates: start: 201306
  2. VITAMIN C [Concomitant]
     Active Substance: ASCORBIC ACID
  3. GABAPENTIN. [Concomitant]
     Active Substance: GABAPENTIN
  4. CELEBREX [Concomitant]
     Active Substance: CELECOXIB
  5. AMANTADINE [Concomitant]
     Active Substance: AMANTADINE
  6. ENABLEX [Concomitant]
     Active Substance: DARIFENACIN HYDROBROMIDE

REACTIONS (1)
  - Dizziness [Not Recovered/Not Resolved]
